FAERS Safety Report 4302846-7 (Version None)
Quarter: 2004Q1

REPORT INFORMATION
  Report Type: 
  Country: None (occurrence: None)
  Receive Date: 20040223
  Receipt Date: 20040223
  Transmission Date: 20041129
  Serious: No
  Sender: FDA-Public Use
  Company Number: None

PATIENT
  Age: 25 Year
  Sex: Male
  Weight: 84.369 kg

DRUGS (1)
  1. ZOLOFT [Suspect]
     Dosage: 1 DAY ORAL
     Route: 048

REACTIONS (3)
  - ACNE [None]
  - DIZZINESS [None]
  - HYPOAESTHESIA [None]
